FAERS Safety Report 9115085 (Version 4)
Quarter: 2014Q1

REPORT INFORMATION
  Report Type: Spontaneous
  Country: JP (occurrence: JP)
  Receive Date: 20130225
  Receipt Date: 20140110
  Transmission Date: 20141002
  Serious: Yes (Hospitalization, Other)
  Sender: FDA-Public Use
  Company Number: PHHY2013JP017579

PATIENT
  Age: 57 Year
  Sex: Female
  Weight: 37 kg

DRUGS (2)
  1. ZOMETA [Suspect]
     Indication: METASTASES TO BONE
     Route: 041
     Dates: start: 20071108, end: 201206
  2. RANMARK [Suspect]
     Route: 058
     Dates: start: 201206

REACTIONS (6)
  - Osteonecrosis of jaw [Unknown]
  - Tooth loss [Unknown]
  - Exposed bone in jaw [Unknown]
  - Purulent discharge [Unknown]
  - Pain [Unknown]
  - Dyspnoea [Unknown]
